FAERS Safety Report 13089726 (Version 1)
Quarter: 2016Q4

REPORT INFORMATION
  Report Type: Spontaneous
  Country: None (occurrence: US)
  Receive Date: 20161231
  Receipt Date: 20161231
  Transmission Date: 20170207
  Serious: Yes (Hospitalization)
  Sender: FDA-Public Use
  Company Number: None

PATIENT
  Age: 77 Year
  Sex: Male
  Weight: 82.1 kg

DRUGS (2)
  1. MEMANTINE HYDROCHLORIDE. [Suspect]
     Active Substance: MEMANTINE HYDROCHLORIDE
     Dates: end: 20161115
  2. NIVOLUMAB [Concomitant]
     Active Substance: NIVOLUMAB

REACTIONS (3)
  - Pneumonitis [None]
  - Muscular weakness [None]
  - Fatigue [None]

NARRATIVE: CASE EVENT DATE: 20161216
